FAERS Safety Report 4543923-5 (Version None)
Quarter: 2004Q4

REPORT INFORMATION
  Report Type: 
  Country: None (occurrence: None)
  Receive Date: 20041229
  Receipt Date: 20041229
  Transmission Date: 20050328
  Serious: No
  Sender: FDA-Public Use
  Company Number: None

PATIENT
  Age: 52 Year
  Sex: Female

DRUGS (11)
  1. GABAPENTIN 300 MG TABLETS IVAX [Suspect]
     Dosage: 900 MG QID
     Dates: start: 20041011
  2. GABAPENTIN 300 MG TABLETS IVAX [Suspect]
     Dosage: 900 MG QID
     Dates: start: 20041202
  3. SEROQUEL [Concomitant]
  4. PREVACID [Concomitant]
  5. ZETIA [Concomitant]
  6. PLAVIX [Concomitant]
  7. LORATADINE [Concomitant]
  8. TRAMADOL HCL [Concomitant]
  9. BEXTRA [Concomitant]
  10. NORVASC [Concomitant]
  11. NEURONTIN [Concomitant]

REACTIONS (10)
  - ANGER [None]
  - FALL [None]
  - HAIR PLUCKING [None]
  - MOOD SWINGS [None]
  - PHARMACEUTICAL PRODUCT COMPLAINT [None]
  - PSYCHOMOTOR HYPERACTIVITY [None]
  - RESTLESS LEGS SYNDROME [None]
  - SCRATCH [None]
  - SELF INJURIOUS BEHAVIOUR [None]
  - SOMNOLENCE [None]
